FAERS Safety Report 5376412-9 (Version None)
Quarter: 2007Q3

REPORT INFORMATION
  Report Type: 
  Country: None (occurrence: None)
  Receive Date: 20070702
  Receipt Date: 20070622
  Transmission Date: 20080115
  Serious: Yes (Hospitalization)
  Sender: FDA-Public Use
  Company Number: US-GENENTECH-232586

PATIENT
  Age: 41 Year
  Sex: Male

DRUGS (3)
  1. BEVACIZUMAB [Suspect]
     Indication: NON-SMALL CELL LUNG CANCER
     Dosage: 10 MG/KG, QOW
     Route: 042
     Dates: start: 20060911, end: 20061030
  2. TAXOL [Suspect]
     Indication: NON-SMALL CELL LUNG CANCER
     Dosage: 45 MG/M2, 1/WEEK
     Route: 042
     Dates: start: 20060911, end: 20061030
  3. CARBOPLATIN [Suspect]
     Indication: NON-SMALL CELL LUNG CANCER
     Dosage: 2 AUC, UNK
     Route: 042
     Dates: start: 20060911, end: 20061030

REACTIONS (19)
  - ANXIETY [None]
  - BLOOD UREA DECREASED [None]
  - COMPUTERISED TOMOGRAM ABNORMAL [None]
  - DYSPHAGIA [None]
  - ERUCTATION [None]
  - HAEMATOCRIT DECREASED [None]
  - HAEMOGLOBIN DECREASED [None]
  - HYPOVOLAEMIA [None]
  - LUNG NEOPLASM MALIGNANT [None]
  - MALIGNANT NEOPLASM PROGRESSION [None]
  - OESOPHAGITIS [None]
  - PLATELET COUNT DECREASED [None]
  - PLEURAL EFFUSION [None]
  - PULMONARY ARTERIAL WEDGE PRESSURE DECREASED [None]
  - PULMONARY HYPERTENSION [None]
  - RADIATION OESOPHAGITIS [None]
  - RED BLOOD CELL COUNT DECREASED [None]
  - TACHYCARDIA [None]
  - WEIGHT DECREASED [None]
